FAERS Safety Report 12669627 (Version 2)
Quarter: 2016Q3

REPORT INFORMATION
  Report Type: Report from Study
  Country: US (occurrence: US)
  Receive Date: 20160819
  Receipt Date: 20160926
  Transmission Date: 20161109
  Serious: Yes (Other)
  Sender: FDA-Public Use
  Company Number: US-AMGEN-USASL2016105866

PATIENT
  Age: 62 Year
  Sex: Female

DRUGS (1)
  1. PROLIA [Suspect]
     Active Substance: DENOSUMAB
     Indication: OSTEOPOROSIS POSTMENOPAUSAL
     Dosage: UNK
     Route: 065
     Dates: start: 20160401

REACTIONS (15)
  - Parosmia [Unknown]
  - Hot flush [Unknown]
  - Oral disorder [Unknown]
  - Constipation [Unknown]
  - Stress [Unknown]
  - Vitamin D decreased [Unknown]
  - Herpes zoster oticus [Unknown]
  - Oral discomfort [Unknown]
  - Toothache [Not Recovered/Not Resolved]
  - Burning sensation [Unknown]
  - Feeling abnormal [Unknown]
  - Artificial crown procedure [Unknown]
  - Endodontic procedure [Unknown]
  - Tooth extraction [Unknown]
  - Weight decreased [Unknown]

NARRATIVE: CASE EVENT DATE: 2016
